FAERS Safety Report 6683349-1 (Version None)
Quarter: 2010Q2

REPORT INFORMATION
  Report Type: 
  Country: None (occurrence: None)
  Receive Date: 20100415
  Receipt Date: 20080423
  Transmission Date: 20101027
  Serious: Yes (Life-Threatening)
  Sender: FDA-Public Use
  Company Number: GB-BAXTER-2008BH004289

PATIENT
  Age: 51 Year
  Sex: Male

DRUGS (2)
  1. LIDOCAINE HYDROCHLORIDE [Suspect]
     Indication: ANAESTHESIA
     Route: 058
     Dates: start: 20080402, end: 20080402
  2. CHIROCAINE [Suspect]
     Indication: ANAESTHESIA
     Route: 058
     Dates: start: 20080402, end: 20080402

REACTIONS (3)
  - BRADYCARDIA [None]
  - HYPOTENSION [None]
  - PRESYNCOPE [None]
